FAERS Safety Report 9978817 (Version 1)
Quarter: 2014Q1

REPORT INFORMATION
  Report Type: Spontaneous
  Country: US (occurrence: US)
  Receive Date: 20140306
  Receipt Date: 20140306
  Transmission Date: 20141002
  Serious: No
  Sender: FDA-Public Use
  Company Number: US-ABBVIE-13P-163-1169031-00

PATIENT
  Age: 53 Year
  Sex: Female
  Weight: 127.12 kg

DRUGS (6)
  1. HUMIRA [Suspect]
     Indication: COLITIS ULCERATIVE
     Route: 058
     Dates: start: 201305, end: 201310
  2. HUMIRA [Suspect]
     Route: 058
     Dates: start: 201310
  3. ASACOL [Concomitant]
     Indication: COLITIS ULCERATIVE
  4. NEXIUM [Concomitant]
     Indication: GASTROOESOPHAGEAL REFLUX DISEASE
  5. QVAR [Concomitant]
     Indication: ASTHMA
  6. ADVAIR [Concomitant]
     Indication: ASTHMA

REACTIONS (2)
  - Alopecia [Not Recovered/Not Resolved]
  - Colitis ulcerative [Recovering/Resolving]
